FAERS Safety Report 4441274-0 (Version None)
Quarter: 2004Q3

REPORT INFORMATION
  Report Type: 
  Country: None (occurrence: None)
  Receive Date: 20040728
  Receipt Date: 20040329
  Transmission Date: 20050211
  Serious: No
  Sender: FDA-Public Use
  Company Number: USA040363443

PATIENT
  Age: 6 Year
  Sex: Male
  Weight: 30 kg

DRUGS (2)
  1. STRATTERA [Suspect]
     Indication: DEPRESSION
     Dosage: 25 MG DAY
     Dates: start: 20031029, end: 20040324
  2. MIRALAX [Concomitant]

REACTIONS (8)
  - ANOREXIA [None]
  - CONSTIPATION [None]
  - EMOTIONAL DISORDER [None]
  - ERYTHEMA [None]
  - HUNGER [None]
  - OEDEMA PERIPHERAL [None]
  - PERIPHERAL COLDNESS [None]
  - WEIGHT DECREASED [None]
